FAERS Safety Report 15185703 (Version 1)
Quarter: 2018Q4

REPORT INFORMATION
  Report Type: Spontaneous
  Country: US (occurrence: US)
  Receive Date: 20180723
  Receipt Date: 20180723
  Transmission Date: 20190204
  Serious: No
  Sender: FDA-Public Use
  Company Number: US-TEVA-2018-US-930711

PATIENT
  Age: 72 Year
  Sex: Female

DRUGS (1)
  1. TEVA LORAZEPAM [Suspect]
     Active Substance: LORAZEPAM
     Route: 065

REACTIONS (4)
  - Panic attack [Unknown]
  - Abnormal dreams [Unknown]
  - Crying [Unknown]
  - Speech disorder [Unknown]
